FAERS Safety Report 16772162 (Version 1)
Quarter: 2019Q3

REPORT INFORMATION
  Report Type: Report from Study
  Country: US (occurrence: US)
  Receive Date: 20190904
  Receipt Date: 20190904
  Transmission Date: 20191005
  Serious: No
  Sender: FDA-Public Use
  Company Number: US-EMD SERONO-9096551

PATIENT
  Age: 50 Year
  Sex: Female

DRUGS (1)
  1. MAVENCLAD [Suspect]
     Active Substance: CLADRIBINE
     Indication: MULTIPLE SCLEROSIS
     Dosage: FIRST YEAR FIRST WEEK THERAPY: THE PATIENT WAS PRESCRIBED TO TAKE TWO TABLETS (EACH OF 10MG) ORALLY
     Route: 048
     Dates: start: 20190601

REACTIONS (7)
  - Vision blurred [Unknown]
  - Dyskinesia [Unknown]
  - Hypoaesthesia [Unknown]
  - Eye movement disorder [Unknown]
  - Back pain [Unknown]
  - Bone pain [Unknown]
  - Muscle twitching [Unknown]

NARRATIVE: CASE EVENT DATE: 20190601
